FAERS Safety Report 9884432 (Version 3)
Quarter: 2014Q2

REPORT INFORMATION
  Report Type: Spontaneous
  Country: US (occurrence: US)
  Receive Date: 20140210
  Receipt Date: 20140502
  Transmission Date: 20141212
  Serious: Yes (Death, Hospitalization, Other)
  Sender: FDA-Public Use
  Company Number: US-ASTELLAS-2014US001217

PATIENT
  Age: 88 Year
  Sex: Male
  Weight: 62 kg

DRUGS (7)
  1. XTANDI [Suspect]
     Indication: PROSTATE CANCER
     Route: 048
     Dates: start: 20131101, end: 20140129
  2. PREDNISONE [Concomitant]
     Indication: PRODUCT USED FOR UNKNOWN INDICATION
     Route: 048
  3. XGEVA [Concomitant]
     Indication: PRODUCT USED FOR UNKNOWN INDICATION
     Route: 065
  4. ELIGARD [Concomitant]
     Indication: PRODUCT USED FOR UNKNOWN INDICATION
     Dosage: EVERY 6 MONTHS
     Route: 058
  5. VITAMIN D                          /00107901/ [Concomitant]
     Indication: PRODUCT USED FOR UNKNOWN INDICATION
     Route: 065
  6. CALCIUM [Concomitant]
     Indication: PRODUCT USED FOR UNKNOWN INDICATION
     Route: 065
  7. MEGACE [Concomitant]
     Indication: PRODUCT USED FOR UNKNOWN INDICATION
     Route: 065
     Dates: start: 201311, end: 201401

REACTIONS (14)
  - Death [Fatal]
  - Fall [Unknown]
  - Pneumonia [Unknown]
  - Hip fracture [Unknown]
  - Dehydration [Unknown]
  - Malnutrition [Unknown]
  - Anaemia [Unknown]
  - Malignant neoplasm progression [Unknown]
  - Asthenia [Unknown]
  - Decreased appetite [Unknown]
  - Hypersomnia [Unknown]
  - Back pain [Unknown]
  - Ear pain [Unknown]
  - Headache [Unknown]
